FAERS Safety Report 4553804-9 (Version None)
Quarter: 2004Q4

REPORT INFORMATION
  Report Type: 
  Country: None (occurrence: None)
  Receive Date: 20041227
  Receipt Date: 20041102
  Transmission Date: 20050328
  Serious: No
  Sender: FDA-Public Use
  Company Number: 04P-163-0279581-00

PATIENT
  Age: 41 Year
  Sex: Female
  Weight: 81.6475 kg

DRUGS (5)
  1. HUMIRA [Suspect]
     Indication: ALPHA TUMOUR NECROSIS FACTOR
     Dosage: 40 MG, 1 IN 2 WK, SUBCUTANEOUS
     Route: 058
     Dates: start: 20041029
  2. VALACYCLOVIR HCL [Concomitant]
  3. LEVOFLOXACIN [Concomitant]
  4. DIPHENHYDRAMINE HCL [Concomitant]
  5. ACETYLSALICYLIC ACID SRT [Concomitant]

REACTIONS (3)
  - DIZZINESS [None]
  - INJECTION SITE PAIN [None]
  - SOMNOLENCE [None]
